FAERS Safety Report 20519986 (Version 1)
Quarter: 2022Q1

REPORT INFORMATION
  Report Type: Spontaneous
  Country: US (occurrence: US)
  Receive Date: 20220225
  Receipt Date: 20220225
  Transmission Date: 20220423
  Serious: No
  Sender: FDA-Public Use
  Company Number: US-LANTHEUS-LMI-2021-01122

PATIENT
  Age: 53 Year
  Sex: Female
  Weight: 148 kg

DRUGS (1)
  1. DEFINITY [Suspect]
     Active Substance: PERFLUTREN
     Indication: Stress echocardiogram
     Dosage: 9 MILLILITRE (1.3 ML DEFINITY PREPARED IN 8.7 ML NORMAL SALINE); LOT NUMBER FOR OTHER DOSE 6292, 01N
     Route: 042
     Dates: start: 20210908, end: 20210908

REACTIONS (3)
  - Product preparation error [Unknown]
  - Headache [Unknown]
  - Drug ineffective [Unknown]

NARRATIVE: CASE EVENT DATE: 20210908
